FAERS Safety Report 22612928 (Version 1)
Quarter: 2023Q2

REPORT INFORMATION
  Report Type: Spontaneous
  Country: DE (occurrence: DE)
  Receive Date: 20230617
  Receipt Date: 20230617
  Transmission Date: 20230722
  Serious: Yes (Death)
  Sender: FDA-Public Use
  Company Number: DE-SKF-000044

PATIENT
  Age: 35 Year
  Sex: Male
  Weight: 67 kg

DRUGS (2)
  1. PREGABALIN [Suspect]
     Active Substance: PREGABALIN
     Indication: Product used for unknown indication
     Route: 045
  2. FENTANYL [Suspect]
     Active Substance: FENTANYL
     Indication: Product used for unknown indication
     Route: 045

REACTIONS (8)
  - Toxicity to various agents [Fatal]
  - Brain oedema [Fatal]
  - Hepatomegaly [Fatal]
  - Congestive hepatopathy [Fatal]
  - Haemolysis [Fatal]
  - Respiratory depression [Fatal]
  - Pulmonary oedema [Fatal]
  - Urinary retention [Fatal]
